FAERS Safety Report 7102228-9 (Version None)
Quarter: 2010Q4

REPORT INFORMATION
  Report Type: 
  Country: None (occurrence: None)
  Receive Date: 20101115
  Receipt Date: 20101103
  Transmission Date: 20110411
  Serious: No
  Sender: FDA-Public Use
  Company Number: US-BIOGENIDEC-2010BI034507

PATIENT
  Age: 22 Year
  Sex: Male

DRUGS (2)
  1. TYSABRI [Suspect]
     Indication: MULTIPLE SCLEROSIS
     Route: 042
     Dates: start: 20090917, end: 20100101
  2. TYSABRI [Suspect]
     Route: 042
     Dates: start: 20100101

REACTIONS (1)
  - JC VIRUS TEST POSITIVE [None]
